FAERS Safety Report 9466110 (Version 2)
Quarter: 2013Q3

REPORT INFORMATION
  Report Type: Report from Study
  Country: US (occurrence: US)
  Receive Date: 20130820
  Receipt Date: 20130820
  Transmission Date: 20140515
  Serious: Yes (Other)
  Sender: FDA-Public Use
  Company Number: PHEH2013US016140

PATIENT
  Sex: Male

DRUGS (4)
  1. TOBI [Suspect]
     Dosage: UNK UKN, UNK
  2. TOBI PODHALER [Suspect]
     Indication: CYSTIC FIBROSIS
     Dosage: 112 MG, BID
     Dates: start: 201306
  3. CAYSTON [Concomitant]
     Dosage: UNK UKN, UNK
  4. COLISTIN [Concomitant]
     Dosage: UNK UKN, UNK

REACTIONS (2)
  - Infective pulmonary exacerbation of cystic fibrosis [Unknown]
  - Dyspnoea [Not Recovered/Not Resolved]
